FAERS Safety Report 8026233-3 (Version None)
Quarter: 2012Q1

REPORT INFORMATION
  Report Type: 
  Country: None (occurrence: None)
  Receive Date: 20120105
  Receipt Date: 20110304
  Transmission Date: 20120608
  Serious: No
  Sender: FDA-Public Use
  Company Number: US-ABBOTT-11P-163-0709551-00

PATIENT
  Sex: Female
  Weight: 70.824 kg

DRUGS (3)
  1. CALCIUM W/D [Concomitant]
     Indication: MINERAL SUPPLEMENTATION
     Route: 048
  2. SYNTHROID [Suspect]
     Indication: HYPOTHYROIDISM
     Route: 048
     Dates: start: 19620101, end: 20110131
  3. LEVOTHYROXINE SODIUM [Suspect]
     Indication: PRODUCT USED FOR UNKNOWN INDICATION
     Route: 048
     Dates: start: 20110131, end: 20110303

REACTIONS (3)
  - COELIAC DISEASE [None]
  - GOITRE [None]
  - FATIGUE [None]
